FAERS Safety Report 22649204 (Version 2)
Quarter: 2024Q1

REPORT INFORMATION
  Report Type: Spontaneous
  Country: PT (occurrence: PT)
  Receive Date: 20230628
  Receipt Date: 20240215
  Transmission Date: 20240410
  Serious: Yes (Other)
  Sender: FDA-Public Use
  Company Number: None

PATIENT
  Age: 68 Year
  Sex: Female
  Weight: 65 kg

DRUGS (1)
  1. ANASTROZOLE [Suspect]
     Active Substance: ANASTROZOLE
     Indication: Breast cancer
     Dosage: 1 TABLET 24/24 HOURS, STRENGTH: 1 MG
     Dates: start: 20230315, end: 20230517

REACTIONS (6)
  - Arthralgia [Recovered/Resolved]
  - Vulvovaginal pruritus [Recovered/Resolved]
  - Dysuria [Recovered/Resolved]
  - Blood pressure decreased [Recovered/Resolved]
  - Vaginal discharge [Recovered/Resolved]
  - Fatigue [Recovered/Resolved]

NARRATIVE: CASE EVENT DATE: 20230320
